FAERS Safety Report 4638496-2 (Version None)
Quarter: 2005Q2

REPORT INFORMATION
  Report Type: 
  Country: None (occurrence: None)
  Receive Date: 20050418
  Receipt Date: 20050411
  Transmission Date: 20051028
  Serious: Yes (Hospitalization)
  Sender: FDA-Public Use
  Company Number: MEDI-0003155

PATIENT
  Sex: Male

DRUGS (3)
  1. ETHYOL [Suspect]
     Indication: LIP AND/OR ORAL CAVITY CANCER
     Dosage: 200 MG/M2, 5 IN 1 WK
  2. RADIATION THERAPY [Concomitant]
  3. CISPLATIN [Concomitant]

REACTIONS (2)
  - MEDICAL DEVICE COMPLICATION [None]
  - SEPSIS [None]
